FAERS Safety Report 21933813 (Version 1)
Quarter: 2023Q1

REPORT INFORMATION
  Report Type: Spontaneous
  Country: FR (occurrence: FR)
  Receive Date: 20230201
  Receipt Date: 20230201
  Transmission Date: 20230417
  Serious: Yes (Death, Hospitalization)
  Sender: FDA-Public Use
  Company Number: None

PATIENT
  Age: 76 Year
  Sex: Female
  Weight: 48 kg

DRUGS (12)
  1. BEVACIZUMAB [Suspect]
     Active Substance: BEVACIZUMAB
     Indication: Ovarian cancer
     Dosage: 700 MG (15 MG/KG, ROUNDED DOSE), 2 COURSES
     Route: 065
     Dates: start: 20220921, end: 20221011
  2. PACLITAXEL [Suspect]
     Active Substance: PACLITAXEL
     Indication: Ovarian cancer
     Dosage: INCONNUE, 3 CURES AU TOTAL
     Route: 065
     Dates: start: 20220921, end: 20221102
  3. CARBOPLATIN [Suspect]
     Active Substance: CARBOPLATIN
     Indication: Ovarian cancer
     Dosage: INCONNUE, 3 CURES AU TOTAL
     Route: 065
     Dates: start: 20220921, end: 20221102
  4. AKYNZEO [Concomitant]
  5. PEGFILGRASTIM [Concomitant]
     Active Substance: PEGFILGRASTIM
  6. POLYETHYLENE GLYCOLS [Concomitant]
     Active Substance: POLYETHYLENE GLYCOLS
  7. LOVENOX [Concomitant]
     Active Substance: ENOXAPARIN SODIUM
  8. PROLIA [Concomitant]
     Active Substance: DENOSUMAB
  9. ZOCOR [Concomitant]
     Active Substance: SIMVASTATIN
  10. PRIMPERAN [Concomitant]
     Active Substance: METOCLOPRAMIDE HYDROCHLORIDE
  11. IMODIUM [Concomitant]
     Active Substance: LOPERAMIDE HYDROCHLORIDE
  12. COZAAR [Concomitant]
     Active Substance: LOSARTAN POTASSIUM

REACTIONS (1)
  - Haemorrhagic stroke [Fatal]

NARRATIVE: CASE EVENT DATE: 20221204
